FAERS Safety Report 9610705 (Version 2)
Quarter: 2013Q4

REPORT INFORMATION
  Report Type: Report from Study
  Country: JP (occurrence: JP)
  Receive Date: 20131009
  Receipt Date: 20131009
  Transmission Date: 20140711
  Serious: Yes (Hospitalization)
  Sender: FDA-Public Use
  Company Number: JP-TAKEDA-TCI2013A02004

PATIENT
  Age: 55 Year
  Sex: Male
  Weight: 97 kg

DRUGS (20)
  1. LANSOPRAZOLE [Suspect]
     Indication: PROPHYLAXIS AGAINST GASTROINTESTINAL ULCER
     Dosage: 15 MG, QD
     Route: 048
     Dates: start: 20120924
  2. LANSOPRAZOLE [Suspect]
     Indication: PROPHYLAXIS AGAINST GASTROINTESTINAL ULCER
     Route: 048
     Dates: start: 20120406, end: 20120923
  3. LOXONIN [Concomitant]
     Indication: LUMBAR SPINAL STENOSIS
     Route: 048
  4. LOXONIN [Concomitant]
     Route: 048
  5. LYRICA [Concomitant]
     Indication: LUMBAR SPINAL STENOSIS
     Route: 048
  6. LYRICA [Concomitant]
     Route: 048
  7. MYONAL [Concomitant]
     Indication: LUMBAR SPINAL STENOSIS
     Route: 048
  8. MYONAL [Concomitant]
     Route: 048
  9. XALACOM COMBINATION [Concomitant]
     Indication: GLAUCOMA
     Route: 047
  10. XALACOM COMBINATION [Concomitant]
     Route: 047
  11. OPALMON [Concomitant]
     Indication: LUMBAR SPINAL STENOSIS
     Route: 048
  12. OPALMON [Concomitant]
     Route: 048
  13. AMLODIPINE OD [Concomitant]
     Indication: HYPERTENSION
     Route: 048
     Dates: start: 20120509
  14. MICARDIS [Concomitant]
     Indication: HYPERTENSION
     Route: 048
     Dates: start: 20120521
  15. FLUITRAN [Concomitant]
     Indication: HYPERTENSION
     Route: 048
     Dates: start: 20120616
  16. TSUMURA BOFUTSUSHOSAN [Concomitant]
     Indication: OBESITY
     Route: 048
     Dates: start: 20120616
  17. GEBEN [Concomitant]
     Indication: SKIN ULCER
     Route: 062
     Dates: start: 20121023, end: 20130407
  18. GEBEN [Concomitant]
     Indication: SKIN ULCER
  19. TAKEPRON CAPSULES 30 [Suspect]
     Indication: PROPHYLAXIS AGAINST GASTROINTESTINAL ULCER
     Route: 048
     Dates: start: 20120924
  20. TAKEPRON CAPSULES 30 [Suspect]
     Route: 048
     Dates: start: 20120406, end: 20120923

REACTIONS (1)
  - Varicose vein [Recovered/Resolved]
